FAERS Safety Report 15959515 (Version 2)
Quarter: 2019Q1

REPORT INFORMATION
  Report Type: Spontaneous
  Country: FR (occurrence: FR)
  Receive Date: 20190214
  Receipt Date: 20190320
  Transmission Date: 20190417
  Serious: Yes (Other)
  Sender: FDA-Public Use
  Company Number: FR-ACCORD-106955

PATIENT
  Age: 84 Year
  Sex: Male

DRUGS (16)
  1. KARDEGIC [Concomitant]
     Active Substance: ASPIRIN DL-LYSINE
     Dosage: STRENGTH 75 MG
  2. PAROXETINE. [Concomitant]
     Active Substance: PAROXETINE
  3. METFORMIN [Suspect]
     Active Substance: METFORMIN HYDROCHLORIDE
     Indication: PRODUCT USED FOR UNKNOWN INDICATION
     Route: 048
     Dates: start: 20180525, end: 20180525
  4. LARGACTIL [Suspect]
     Active Substance: CHLORPROMAZINE
     Indication: PRODUCT USED FOR UNKNOWN INDICATION
     Dosage: STRENGTH 25 MG
     Route: 048
     Dates: start: 20180525, end: 20180525
  5. PREGABALIN. [Concomitant]
     Active Substance: PREGABALIN
  6. UVEDOSE [Concomitant]
     Active Substance: CHOLECALCIFEROL
     Dosage: STRENGTH 100,000 IU
  7. AMLODIPINE [Suspect]
     Active Substance: AMLODIPINE BESYLATE
     Indication: PRODUCT USED FOR UNKNOWN INDICATION
     Route: 048
     Dates: start: 20180525, end: 20180525
  8. CORDARONE [Concomitant]
     Active Substance: AMIODARONE HYDROCHLORIDE
  9. MACROGOL [Concomitant]
     Active Substance: POLYETHYLENE GLYCOLS
  10. PERINDOPRIL/PERINDOPRIL ERBUMINE [Suspect]
     Active Substance: PERINDOPRIL ERBUMINE
     Indication: PRODUCT USED FOR UNKNOWN INDICATION
     Route: 048
     Dates: start: 20180525, end: 20180525
  11. RAMIPRIL. [Concomitant]
     Active Substance: RAMIPRIL
  12. RIVASTIGMINE/RIVASTIGMINE TARTRATE [Concomitant]
  13. LAROXYL [Suspect]
     Active Substance: AMITRIPTYLINE HYDROCHLORIDE
     Indication: PRODUCT USED FOR UNKNOWN INDICATION
     Dosage: STRENGTH 25 MG
     Route: 048
     Dates: start: 20180525, end: 20180525
  14. DAFALGAN [Concomitant]
     Active Substance: ACETAMINOPHEN
  15. LASILIX [Concomitant]
     Active Substance: FUROSEMIDE
  16. LOVENOX [Concomitant]
     Active Substance: ENOXAPARIN SODIUM

REACTIONS (3)
  - Somnolence [Recovered/Resolved]
  - Product administration error [Unknown]
  - Fall [Unknown]

NARRATIVE: CASE EVENT DATE: 20180525
